FAERS Safety Report 18504320 (Version 1)
Quarter: 2020Q4

REPORT INFORMATION
  Report Type: Spontaneous
  Country: GB (occurrence: GB)
  Receive Date: 20201114
  Receipt Date: 20201114
  Transmission Date: 20210114
  Serious: Yes (Other)
  Sender: FDA-Public Use
  Company Number: GB-ALKEM LABORATORIES LIMITED-GB-ALKEM-2020-05707

PATIENT
  Age: 46 Year
  Sex: Male

DRUGS (1)
  1. PREGABALIN. [Suspect]
     Active Substance: PREGABALIN
     Indication: PRODUCT USED FOR UNKNOWN INDICATION
     Dosage: UNK
     Route: 065

REACTIONS (9)
  - Arthralgia [Unknown]
  - Dissociation [Unknown]
  - Withdrawal syndrome [Unknown]
  - Vision blurred [Unknown]
  - Therapeutic response shortened [Unknown]
  - Rash [Unknown]
  - Emotional disorder [Unknown]
  - Suicidal ideation [Unknown]
  - Fatigue [Unknown]
